FAERS Safety Report 5374117-1 (Version None)
Quarter: 2007Q2

REPORT INFORMATION
  Report Type: 
  Country: None (occurrence: None)
  Receive Date: 20070627
  Receipt Date: 20070301
  Transmission Date: 20071010
  Serious: Yes (Other)
  Sender: FDA-Public Use
  Company Number: 8024148

PATIENT
  Age: 48 Year
  Sex: Female

DRUGS (4)
  1. KEPPRA [Suspect]
     Dosage: 1000 MG 2/D PO
     Route: 048
     Dates: start: 20070207
  2. NEUROLEPTIC [Concomitant]
  3. GABAPENTIN [Concomitant]
  4. ASPIRIN [Concomitant]

REACTIONS (2)
  - LEUKOPENIA [None]
  - PLATELET COUNT DECREASED [None]
